FAERS Safety Report 7355196-9 (Version None)
Quarter: 2011Q1

REPORT INFORMATION
  Report Type: 
  Country: None (occurrence: None)
  Receive Date: 20110316
  Receipt Date: 20110311
  Transmission Date: 20110831
  Serious: Yes (Hospitalization, Other)
  Sender: FDA-Public Use
  Company Number: ZA-SANOFI-AVENTIS-2011SA011902

PATIENT
  Age: 63 Year
  Sex: Male
  Weight: 57 kg

DRUGS (4)
  1. DOCETAXEL [Suspect]
     Route: 041
     Dates: start: 20110215, end: 20110215
  2. CISPLATIN [Suspect]
     Route: 042
     Dates: start: 20110215, end: 20110215
  3. GRANOCYTE [Suspect]
     Indication: PROPHYLAXIS
     Dates: start: 20110216, end: 20110222
  4. 5-FU [Suspect]
     Route: 042
     Dates: start: 20110214, end: 20110218

REACTIONS (3)
  - NEUTROPENIC SEPSIS [None]
  - ATRIAL FIBRILLATION [None]
  - HYPONATRAEMIA [None]
